FAERS Safety Report 7835295-5 (Version None)
Quarter: 2011Q4

REPORT INFORMATION
  Report Type: 
  Country: None (occurrence: None)
  Receive Date: 20111024
  Receipt Date: 20111017
  Transmission Date: 20120403
  Serious: Yes (Other)
  Sender: FDA-Public Use
  Company Number: PHEH2011US04120

PATIENT
  Sex: Female

DRUGS (10)
  1. SIMVASTATIN [Concomitant]
     Dosage: 40 MG, UNK
  2. CARVEDILOL [Suspect]
     Dosage: 6.5 MG, UNK
  3. PLAVIX [Suspect]
     Dosage: 75 MG, QD
  4. DIOVAN HCT [Suspect]
     Dosage: 160 MG OF VALS AND 12.5 MG OF HCT
  5. METOPROLOL TARTRATE [Suspect]
  6. DOLO-NEUROBION FORTE [Concomitant]
     Dosage: UNK ?, UNK
  7. ASPIRIN [Concomitant]
     Dosage: 81 MG, QD
  8. DIOVAN [Concomitant]
     Dosage: 360 MG, UNK
  9. CARVEDILOL [Suspect]
     Dosage: 12.5 MG, BID
  10. GABAPENTIN [Concomitant]
     Dosage: 100 MG, QD

REACTIONS (10)
  - INAPPROPRIATE ANTIDIURETIC HORMONE SECRETION [None]
  - CONTUSION [None]
  - FATIGUE [None]
  - COUGH [None]
  - URINE OSMOLARITY DECREASED [None]
  - HYPONATRAEMIA [None]
  - HYPOPHAGIA [None]
  - SKIN DISCOLOURATION [None]
  - ABDOMINAL PAIN UPPER [None]
  - MALAISE [None]
